FAERS Safety Report 8554902-5 (Version None)
Quarter: 2012Q3

REPORT INFORMATION
  Report Type: 
  Country: None (occurrence: None)
  Receive Date: 20120731
  Receipt Date: 20120723
  Transmission Date: 20120928
  Serious: Yes (Hospitalization, Disabling, Other)
  Sender: FDA-Public Use
  Company Number: US-ELI_LILLY_AND_COMPANY-US201108008073

PATIENT
  Sex: Female

DRUGS (26)
  1. EVISTA [Suspect]
     Indication: OSTEOPOROSIS
     Dosage: 60 MG, QD
     Dates: start: 20110401
  2. FLUTICASONE PROPIONATE [Concomitant]
     Route: 045
  3. ALBUTEROL [Concomitant]
  4. NEXIUM [Concomitant]
  5. POLYETHYLENE GLYCOL [Concomitant]
  6. NOVOLOG [Concomitant]
  7. STOOL SOFTENER [Concomitant]
  8. FORTEO [Suspect]
     Dosage: 20 UG, QD
  9. DIOVAN [Concomitant]
  10. FERROUS SULFATE TAB [Concomitant]
  11. FUROSEMIDE [Concomitant]
  12. CYMBALTA [Suspect]
     Indication: DEPRESSION
     Dosage: 60 MG, QD
  13. MULTI-VITAMIN [Concomitant]
  14. LORATADINE [Concomitant]
  15. SIMVASTATIN [Concomitant]
  16. ISOSORBIDE DINITRATE [Concomitant]
  17. SINGULAIR [Concomitant]
  18. OXYCODONE HCL [Concomitant]
     Dosage: 10 MG, EVERY 4 HRS
  19. ASPIRIN [Concomitant]
     Dosage: 81 MG, UNK
  20. AMLODIPINE BESYLATE [Concomitant]
     Dosage: 10 MG, UNK
  21. BUPROPION HCL [Concomitant]
     Dosage: 150 MG, UNK
  22. OXYGEN [Concomitant]
     Dosage: 3 L, UNK
     Dates: start: 20040101
  23. FORTEO [Suspect]
     Indication: OSTEOPOROSIS
     Dosage: 20 UG, QD
     Route: 065
     Dates: start: 20110630
  24. FAMOTIDINE [Concomitant]
  25. PROVIGIL [Concomitant]
  26. LANTUS [Concomitant]

REACTIONS (17)
  - HOSPITALISATION [None]
  - MUSCULAR WEAKNESS [None]
  - BONE DISORDER [None]
  - ILL-DEFINED DISORDER [None]
  - URINARY TRACT INFECTION [None]
  - BLOOD MAGNESIUM DECREASED [None]
  - MALAISE [None]
  - FALL [None]
  - BLOOD PRESSURE INCREASED [None]
  - BODY TEMPERATURE INCREASED [None]
  - ARTHRALGIA [None]
  - VOMITING [None]
  - UPPER LIMB FRACTURE [None]
  - HEADACHE [None]
  - MUSCULOSKELETAL DISORDER [None]
  - DEHYDRATION [None]
  - AMNESIA [None]
